FAERS Safety Report 25428506 (Version 1)
Quarter: 2025Q2

REPORT INFORMATION
  Report Type: Spontaneous
  Country: US (occurrence: US)
  Receive Date: 20250612
  Receipt Date: 20250612
  Transmission Date: 20250717
  Serious: No
  Sender: SANOFI AVENTIS
  Company Number: US-SANOFI-02552649

PATIENT
  Age: 58 Year
  Sex: Female

DRUGS (1)
  1. CLOPIDOGREL BISULFATE [Suspect]
     Active Substance: CLOPIDOGREL BISULFATE
     Dosage: 75 MG, QD

REACTIONS (3)
  - Intra-abdominal fluid collection [Unknown]
  - Abdominal distension [Unknown]
  - Liver disorder [Unknown]

NARRATIVE: CASE EVENT DATE: 20240901
